FAERS Safety Report 7907313-7 (Version None)
Quarter: 2011Q4

REPORT INFORMATION
  Report Type: 
  Country: None (occurrence: None)
  Receive Date: 20111110
  Receipt Date: 20111107
  Transmission Date: 20120403
  Serious: Yes (Death)
  Sender: FDA-Public Use
  Company Number: US-GLAXOSMITHKLINE-A0952174A

PATIENT
  Age: 77 Year
  Sex: Male

DRUGS (4)
  1. OXYCONTIN [Concomitant]
  2. ARIXTRA [Suspect]
     Indication: THROMBOSIS
     Dosage: 7.5MG PER DAY
     Route: 058
     Dates: start: 20110407
  3. TAMSULOSIN HCL [Concomitant]
  4. ALLOPURINOL [Concomitant]

REACTIONS (1)
  - LUNG NEOPLASM MALIGNANT [None]
